FAERS Safety Report 7519725-4 (Version None)
Quarter: 2011Q2

REPORT INFORMATION
  Report Type: 
  Country: None (occurrence: None)
  Receive Date: 20110602
  Receipt Date: 20110531
  Transmission Date: 20111010
  Serious: Yes (Life-Threatening, Hospitalization, Other)
  Sender: FDA-Public Use
  Company Number: FR-PFIZER INC-2011116995

PATIENT
  Age: 56 Year
  Sex: Female

DRUGS (6)
  1. CRESTOR [Interacting]
     Dosage: 20 MG, 2X/DAY
     Route: 048
     Dates: end: 20110423
  2. RAMIPRIL [Interacting]
     Dosage: 10 MG, 1X/DAY
     Route: 048
     Dates: end: 20110423
  3. LYRICA [Suspect]
     Indication: PAIN IN EXTREMITY
     Dosage: 200 MG, 2X/DAY
     Route: 048
     Dates: end: 20110423
  4. EZETIMIBE [Interacting]
     Dosage: 10 MG, 1X/DAY
     Route: 048
     Dates: end: 20110423
  5. METFORMIN HCL [Interacting]
     Dosage: 1000 MG, 3X/DAY
     Route: 048
     Dates: end: 20110423
  6. IRBESARTAN AND HYDROCHLOROTHIAZIDE [Interacting]
     Dosage: 1 DF, 1X/DAY
     Route: 048
     Dates: end: 20110423

REACTIONS (5)
  - ALTERED STATE OF CONSCIOUSNESS [None]
  - RENAL FAILURE ACUTE [None]
  - DRUG INTERACTION [None]
  - ACIDOSIS [None]
  - RHABDOMYOLYSIS [None]
